FAERS Safety Report 13023508 (Version 1)
Quarter: 2016Q4

REPORT INFORMATION
  Report Type: Spontaneous
  Country: US (occurrence: US)
  Receive Date: 20161212
  Receipt Date: 20161212
  Transmission Date: 20170207
  Serious: No
  Sender: FDA-Public Use
  Company Number: None

PATIENT
  Age: 77 Year
  Sex: Male
  Weight: 73.35 kg

DRUGS (5)
  1. MULTIVITAMIN [Concomitant]
     Active Substance: VITAMINS
  2. CALCIUM D3 VITAMIN [Concomitant]
  3. ASPIRIN. [Concomitant]
     Active Substance: ASPIRIN
  4. FISH OIL [Concomitant]
     Active Substance: FISH OIL
  5. ALFUSOSIN [Suspect]
     Active Substance: ALFUZOSIN
     Indication: PROSTATOMEGALY
     Dosage: ?          QUANTITY:1 TABLET(S);?
     Route: 048
     Dates: start: 20161201, end: 20161212

REACTIONS (7)
  - Dizziness [None]
  - Fatigue [None]
  - Asthenia [None]
  - Chest discomfort [None]
  - Dysphonia [None]
  - Dyspnoea [None]
  - Tinnitus [None]

NARRATIVE: CASE EVENT DATE: 20161201
